FAERS Safety Report 10082201 (Version 2)
Quarter: 2014Q2

REPORT INFORMATION
  Report Type: Spontaneous
  Country: TW (occurrence: TW)
  Receive Date: 20140416
  Receipt Date: 20140527
  Transmission Date: 20141212
  Serious: Yes (Other)
  Sender: FDA-Public Use
  Company Number: TW-BAXTER-2014BAX017679

PATIENT
  Sex: Male

DRUGS (2)
  1. TISSEEL SOLUTION FOR SEALANT [Suspect]
     Indication: CEREBROSPINAL FLUID LEAKAGE
     Route: 065
  2. TISSEEL SOLUTION FOR SEALANT [Suspect]
     Indication: OFF LABEL USE

REACTIONS (1)
  - Cerebrospinal fluid leakage [Unknown]
